FAERS Safety Report 12165897 (Version 1)
Quarter: 2016Q1

REPORT INFORMATION
  Report Type: Report from Study
  Country: AU (occurrence: AU)
  Receive Date: 20160309
  Receipt Date: 20160309
  Transmission Date: 20160526
  Serious: Yes (Other)
  Sender: FDA-Public Use
  Company Number: AU-VERTEX PHARMACEUTICALS-2016-001364

PATIENT
  Age: 28 Year
  Sex: Male
  Weight: 50 kg

DRUGS (9)
  1. HYPERSAL [Concomitant]
     Indication: BRONCHIECTASIS
     Dosage: UNK, BID
     Route: 055
  2. VITABDECK [Concomitant]
     Indication: STAPHYLOCOCCAL INFECTION
     Dosage: 2 DF, QD
     Route: 048
  3. ORKAMBI [Suspect]
     Active Substance: IVACAFTOR\LUMACAFTOR
     Indication: CYSTIC FIBROSIS
     Dosage: 2 DF, BID
     Route: 048
     Dates: start: 20160118
  4. FUSIDIC ACID [Concomitant]
     Active Substance: FUSIDIC ACID
     Indication: STAPHYLOCOCCAL INFECTION
     Dosage: 500 MG, BID, INTERMITTENT COURSES
     Dates: start: 201511
  5. CIPROFLOXACIN. [Concomitant]
     Active Substance: CIPROFLOXACIN
     Indication: STAPHYLOCOCCAL INFECTION
     Dosage: 750 MG, BID, INTERMITTENT COURSE
     Route: 048
     Dates: start: 201511
  6. CREON FORTE [Concomitant]
     Dosage: ~ 20 DAY-3/MEAL AND SNACKS
  7. SYMBICORT [Concomitant]
     Active Substance: BUDESONIDE\FORMOTEROL FUMARATE DIHYDRATE
     Dosage: 200/6, 2 DF, BID
  8. SOMAC [Concomitant]
     Active Substance: PANTOPRAZOLE SODIUM
     Indication: GASTROOESOPHAGEAL REFLUX DISEASE
     Dosage: 40 MG, BID
  9. PULMOZYME [Concomitant]
     Active Substance: DORNASE ALFA
     Dosage: 2.5 MG, UNK
     Route: 055

REACTIONS (2)
  - Infective pulmonary exacerbation of cystic fibrosis [Recovered/Resolved]
  - Weight decreased [Unknown]

NARRATIVE: CASE EVENT DATE: 20160120
